FAERS Safety Report 5833222-3 (Version None)
Quarter: 2008Q3

REPORT INFORMATION
  Report Type: 
  Country: None (occurrence: None)
  Receive Date: 20080805
  Receipt Date: 20080730
  Transmission Date: 20090109
  Serious: Yes (Death, Hospitalization, Congenital Anomaly)
  Sender: FDA-Public Use
  Company Number: ZA-BRISTOL-MYERS SQUIBB COMPANY-14288252

PATIENT
  Age: 2 Month
  Sex: Male

DRUGS (1)
  1. EFAVIRENZ [Suspect]
     Indication: HIV INFECTION
     Route: 064

REACTIONS (3)
  - CARDIAC DISORDER [None]
  - DEATH [None]
  - PREGNANCY [None]
